FAERS Safety Report 14678445 (Version 2)
Quarter: 2018Q4

REPORT INFORMATION
  Report Type: Spontaneous
  Country: FR (occurrence: FR)
  Receive Date: 20180326
  Receipt Date: 20181026
  Transmission Date: 20190204
  Serious: No
  Sender: FDA-Public Use
  Company Number: FR-MERCK KGAA-2044487

PATIENT
  Age: 46 Year
  Sex: Female

DRUGS (1)
  1. EUTHYROX [Suspect]
     Active Substance: LEVOTHYROXINE SODIUM
     Indication: BASEDOW^S DISEASE

REACTIONS (26)
  - Hyperhidrosis [None]
  - Crying [None]
  - Cognitive disorder [None]
  - Amnesia [None]
  - Fall [None]
  - Mood swings [None]
  - Asthenia [None]
  - Pain in extremity [None]
  - Negative thoughts [None]
  - Social avoidant behaviour [None]
  - Palpitations [None]
  - Fatigue [Not Recovered/Not Resolved]
  - Sense of oppression [Not Recovered/Not Resolved]
  - Loss of libido [None]
  - Impaired work ability [None]
  - Irritability [None]
  - Bulimia nervosa [None]
  - Personal relationship issue [None]
  - Gastric disorder [None]
  - Depression [None]
  - Emotional distress [None]
  - Psychiatric symptom [None]
  - Dizziness [Recovering/Resolving]
  - Dyspnoea [None]
  - Apathy [None]
  - Mood altered [None]

NARRATIVE: CASE EVENT DATE: 201705
